FAERS Safety Report 26076246 (Version 1)
Quarter: 2025Q4

REPORT INFORMATION
  Report Type: Spontaneous
  Country: CN (occurrence: CN)
  Receive Date: 20251121
  Receipt Date: 20251121
  Transmission Date: 20260117
  Serious: Yes (Life-Threatening)
  Sender: SANDOZ
  Company Number: CN-SANDOZ-SDZ2025CN087648

PATIENT
  Age: 55 Year
  Sex: Male
  Weight: 70 kg

DRUGS (1)
  1. MONTELUKAST SODIUM [Suspect]
     Active Substance: MONTELUKAST SODIUM
     Indication: Asthma
     Dosage: 10 MG, QD, (BEFORE BED)
     Route: 048
     Dates: start: 20251113, end: 20251113

REACTIONS (4)
  - Pallor [Recovered/Resolved]
  - Asthma [Recovered/Resolved]
  - Tachypnoea [Recovered/Resolved]
  - Drug ineffective [Unknown]

NARRATIVE: CASE EVENT DATE: 20251113
